FAERS Safety Report 8181213-2 (Version None)
Quarter: 2012Q1

REPORT INFORMATION
  Report Type: 
  Country: None (occurrence: None)
  Receive Date: 20120301
  Receipt Date: 20120301
  Transmission Date: 20120608
  Serious: Yes (Hospitalization)
  Sender: FDA-Public Use
  Company Number: None

PATIENT
  Age: 58 Year
  Sex: Female

DRUGS (1)
  1. RENVELA [Suspect]
     Dosage: 800MG ORAL TWICE DAILY
     Route: 048

REACTIONS (1)
  - DYSPNOEA [None]
